FAERS Safety Report 7273747 (Version 3)
Quarter: 2013Q2

REPORT INFORMATION
  Report Type: Report from Study
  Country: GB (occurrence: GB)
  Receive Date: 20100209
  Receipt Date: 20130425
  Transmission Date: 20140414
  Serious: Yes (Hospitalization)
  Sender: FDA-Public Use
  Company Number: GB-JNJFOC-20100201085

PATIENT
  Age: 56 Year
  Sex: Male
  Weight: 87.7 kg

DRUGS (15)
  1. REMICADE [Suspect]
     Indication: CROHN^S DISEASE
     Route: 042
     Dates: start: 20070525
  2. REMICADE [Suspect]
     Indication: CROHN^S DISEASE
     Route: 042
     Dates: start: 20090914
  3. REMICADE [Suspect]
     Indication: CROHN^S DISEASE
     Route: 042
     Dates: start: 20091109
  4. REMICADE [Suspect]
     Indication: CROHN^S DISEASE
     Route: 042
     Dates: start: 20100104
  5. ASACOL [Concomitant]
     Indication: CROHN^S DISEASE
     Dates: start: 20070404
  6. EPILIM CHRONO [Concomitant]
     Indication: EPILEPSY
  7. OMEPRAZOLE [Concomitant]
     Indication: GASTROOESOPHAGEAL REFLUX DISEASE
  8. ADIZEM [Concomitant]
  9. TEGRETOL RETARD [Concomitant]
     Indication: EPILEPSY
     Route: 048
  10. LISINOPRIL [Concomitant]
     Indication: HYPERTENSION
  11. FRUSEMIDE (FUROSEMIDE) [Concomitant]
     Indication: DIURETIC THERAPY
  12. ADCAL -D3 [Concomitant]
  13. PARACETAMOL [Concomitant]
     Indication: PAIN
  14. TRAMADOL [Concomitant]
     Indication: PAIN
  15. LEVOTHYROXINE [Concomitant]
     Indication: HYPOTHYROIDISM
     Dosage: DOSE OF 100 MCG

REACTIONS (3)
  - Epilepsy [Recovered/Resolved]
  - Fall [Unknown]
  - Upper limb fracture [Recovered/Resolved]
